FAERS Safety Report 7299268-6 (Version None)
Quarter: 2011Q1

REPORT INFORMATION
  Report Type: 
  Country: None (occurrence: None)
  Receive Date: 20110217
  Receipt Date: 20110208
  Transmission Date: 20110831
  Serious: Yes (Disabling)
  Sender: FDA-Public Use
  Company Number: GB-ELI_LILLY_AND_COMPANY-GB201102001914

PATIENT
  Age: 45 Year
  Sex: Male
  Weight: 89 kg

DRUGS (4)
  1. CLOTRIMAZOLE [Concomitant]
     Dates: start: 20110106, end: 20110113
  2. OMEPRAZOLE [Concomitant]
     Dates: start: 20101020, end: 20110111
  3. TADALAFIL [Suspect]
     Dates: start: 20110128
  4. CO-CODAMOL [Concomitant]
     Dates: start: 20101122, end: 20101220

REACTIONS (2)
  - RECTAL HAEMORRHAGE [None]
  - MYALGIA [None]
